FAERS Safety Report 5375998-8 (Version None)
Quarter: 2007Q2

REPORT INFORMATION
  Report Type: 
  Country: None (occurrence: None)
  Receive Date: 20070627
  Receipt Date: 20070627
  Transmission Date: 20071010
  Serious: No
  Sender: FDA-Public Use
  Company Number: None

PATIENT
  Age: 81 Year
  Sex: Male
  Weight: 83.4619 kg

DRUGS (3)
  1. AZITHROMYCIN [Suspect]
     Indication: BRONCHITIS
     Dosage: 250MG 1 DAILY P.O.
     Route: 048
     Dates: start: 20070617
  2. AZITHROMYCIN [Suspect]
     Indication: BRONCHITIS
     Dosage: 250MG 1 DAILY P.O.
     Route: 048
     Dates: start: 20070618
  3. AZITHROMYCIN [Suspect]
     Indication: BRONCHITIS
     Dosage: 250MG 1 DAILY P.O.
     Route: 048
     Dates: start: 20070619

REACTIONS (5)
  - ABNORMAL DREAMS [None]
  - AMNESIA [None]
  - CONFUSIONAL STATE [None]
  - DEREALISATION [None]
  - SLEEP TALKING [None]
